FAERS Safety Report 6155210-2 (Version None)
Quarter: 2009Q2

REPORT INFORMATION
  Report Type: 
  Country: None (occurrence: None)
  Receive Date: 20090415
  Receipt Date: 20090409
  Transmission Date: 20091009
  Serious: Yes (Other)
  Sender: FDA-Public Use
  Company Number: US-ASTRAZENECA-2009UW09030

PATIENT
  Sex: Female
  Weight: 66.2 kg

DRUGS (3)
  1. SEROQUEL [Suspect]
     Indication: MANIA
     Route: 048
     Dates: start: 20070101
  2. XANAX [Concomitant]
     Indication: ANXIETY
  3. TRAZODONE HCL [Concomitant]
     Indication: INSOMNIA

REACTIONS (3)
  - DEPRESSION [None]
  - LOSS OF CONSCIOUSNESS [None]
  - WEIGHT INCREASED [None]
